FAERS Safety Report 13790863 (Version 2)
Quarter: 2017Q3

REPORT INFORMATION
  Report Type: Spontaneous
  Country: FR (occurrence: FR)
  Receive Date: 20170725
  Receipt Date: 20170802
  Transmission Date: 20171127
  Serious: Yes (Other)
  Sender: FDA-Public Use
  Company Number: FR-GLENMARK PHARMACEUTICALS-2017GMK028300

PATIENT
  Age: 7 Decade
  Sex: Male

DRUGS (2)
  1. LINEZOLID. [Suspect]
     Active Substance: LINEZOLID
     Indication: GRAFT INFECTION
     Dosage: UNK
     Route: 065
  2. LINEZOLID. [Suspect]
     Active Substance: LINEZOLID
     Indication: STAPHYLOCOCCAL INFECTION

REACTIONS (1)
  - Bone marrow toxicity [Recovered/Resolved]
